FAERS Safety Report 8426845-9 (Version None)
Quarter: 2012Q2

REPORT INFORMATION
  Report Type: 
  Country: None (occurrence: None)
  Receive Date: 20120611
  Receipt Date: 20120604
  Transmission Date: 20120825
  Serious: Yes (Other)
  Sender: FDA-Public Use
  Company Number: US-B.I. PHARMACEUTICALS,INC./RIDGEFIELD-2012-BP-10077BP

PATIENT
  Sex: Male

DRUGS (2)
  1. SPIRIVA [Suspect]
     Indication: CHRONIC OBSTRUCTIVE PULMONARY DISEASE
     Dosage: 18 MCG
     Dates: start: 20091019
  2. SPIRIVA [Suspect]
     Dosage: 18 MCG
     Dates: end: 20100210

REACTIONS (4)
  - OBSESSIVE-COMPULSIVE DISORDER [None]
  - MOOD ALTERED [None]
  - CONFUSIONAL STATE [None]
  - MEMORY IMPAIRMENT [None]
